FAERS Safety Report 14358720 (Version 2)
Quarter: 2018Q3

REPORT INFORMATION
  Report Type: Spontaneous
  Country: US (occurrence: US)
  Receive Date: 20180105
  Receipt Date: 20180816
  Transmission Date: 20181010
  Serious: No
  Sender: FDA-Public Use
  Company Number: US-SA-2017SA248916

PATIENT
  Age: 59 Year
  Sex: Female
  Weight: 56.7 kg

DRUGS (1)
  1. DUPIXENT [Suspect]
     Active Substance: DUPILUMAB
     Indication: DERMATITIS ATOPIC
     Dosage: 300 MG,QOW
     Route: 058
     Dates: start: 201707

REACTIONS (6)
  - Conjunctivitis [Unknown]
  - Cough [Not Recovered/Not Resolved]
  - Sinusitis [Recovering/Resolving]
  - Ocular hyperaemia [Recovered/Resolved]
  - Productive cough [Not Recovered/Not Resolved]
  - Dermatitis atopic [Unknown]

NARRATIVE: CASE EVENT DATE: 20171109
